FAERS Safety Report 20608638 (Version 1)
Quarter: 2022Q1

REPORT INFORMATION
  Report Type: Spontaneous
  Country: DE (occurrence: DE)
  Receive Date: 20220317
  Receipt Date: 20220317
  Transmission Date: 20220423
  Serious: Yes (Other)
  Sender: FDA-Public Use
  Company Number: DE-AMGEN-DEUSP2022043035

PATIENT

DRUGS (4)
  1. XGEVA [Suspect]
     Active Substance: DENOSUMAB
     Indication: Bone giant cell tumour
     Dosage: 120 MILLIGRAM, Q4WK
     Route: 058
  2. CALCIUM [Concomitant]
     Active Substance: CALCIUM
     Dosage: 500 MILLIGRAM, QD
  3. CHOLECALCIFEROL [Concomitant]
     Active Substance: CHOLECALCIFEROL
     Dosage: 400 IU, QD
  4. HYDROGEN PEROXIDE [Concomitant]
     Active Substance: HYDROGEN PEROXIDE

REACTIONS (5)
  - Bone giant cell tumour [Unknown]
  - Osteonecrosis of jaw [Unknown]
  - Arthralgia [Unknown]
  - Myalgia [Unknown]
  - Procedural complication [Unknown]
